FAERS Safety Report 20628980 (Version 1)
Quarter: 2022Q1

REPORT INFORMATION
  Report Type: Spontaneous
  Country: JP (occurrence: None)
  Receive Date: 20220323
  Receipt Date: 20220323
  Transmission Date: 20220423
  Serious: Yes (Other)
  Sender: FDA-Public Use
  Company Number: 2022A119184

PATIENT
  Age: 72 Year
  Sex: Female

DRUGS (8)
  1. IRESSA [Suspect]
     Active Substance: GEFITINIB
     Indication: Non-small cell lung cancer
     Route: 048
  2. TAGRISSO [Suspect]
     Active Substance: OSIMERTINIB
     Indication: Non-small cell lung cancer
     Route: 048
  3. VONOPRAZAN FUMARATE [Concomitant]
     Active Substance: VONOPRAZAN FUMARATE
     Dosage: DOSE UNKNOWN
     Route: 048
  4. MINERAL PREPARATIONS [Concomitant]
     Dosage: DOSE UNKNOWN
     Route: 048
  5. EPINASTINE [Concomitant]
     Active Substance: EPINASTINE
     Dosage: DOSE UNKNOWN
     Route: 048
  6. ASPIRIN [Concomitant]
     Active Substance: ASPIRIN
     Dosage: DOSE UNKNOWN
     Route: 048
  7. AMLODIPINE [Concomitant]
     Active Substance: AMLODIPINE BESYLATE
     Dosage: DOSE UNKNOWN
     Route: 048
  8. ETIZOLAM [Concomitant]
     Active Substance: ETIZOLAM
     Dosage: DOSE UNKNOWN
     Route: 048

REACTIONS (3)
  - Non-small cell lung cancer recurrent [Unknown]
  - Face oedema [Not Recovered/Not Resolved]
  - Feeding disorder [Unknown]

NARRATIVE: CASE EVENT DATE: 20220302
